FAERS Safety Report 10041355 (Version 1)
Quarter: 2014Q1

REPORT INFORMATION
  Report Type: Spontaneous
  Country: US (occurrence: None)
  Receive Date: 20140326
  Receipt Date: 20140326
  Transmission Date: 20141002
  Serious: Yes (Hospitalization)
  Sender: FDA-Public Use
  Company Number: None

PATIENT
  Age: 51 Year
  Sex: Male
  Weight: 113 kg

DRUGS (2)
  1. WARFARIN [Suspect]
     Indication: ATRIAL FIBRILLATION
     Route: 048
  2. MOTRIN [Suspect]
     Indication: ARTHRALGIA
     Route: 048

REACTIONS (7)
  - Dyspnoea [None]
  - Dizziness [None]
  - Asthenia [None]
  - Haemoglobin decreased [None]
  - International normalised ratio increased [None]
  - Gastrointestinal haemorrhage [None]
  - Arthralgia [None]
